FAERS Safety Report 8901557 (Version 2)
Quarter: 2012Q4

REPORT INFORMATION
  Report Type: 
  Country: US (occurrence: US)
  Receive Date: 20121108
  Receipt Date: 20121113
  Transmission Date: 20130627
  Serious: Yes (Life-Threatening)
  Sender: FDA-Public Use
  Company Number: CHPA2012US023232

PATIENT
  Age: 71 Year
  Sex: Female

DRUGS (2)
  1. EXCEDRIN MIGRAINE [Suspect]
     Indication: MIGRAINE
     Dosage: 2 DF, ONCE/SINGLE
     Route: 048
     Dates: start: 20121107, end: 20121107
  2. EXCEDRIN MIGRAINE [Suspect]
     Dosage: 2 to 4 DF, Unk
     Route: 048

REACTIONS (4)
  - Feeling abnormal [Recovered/Resolved]
  - Headache [Recovered/Resolved]
  - Vomiting [Recovered/Resolved]
  - Overdose [Unknown]
